FAERS Safety Report 16867963 (Version 1)
Quarter: 2019Q3

REPORT INFORMATION
  Report Type: Spontaneous
  Country: DE (occurrence: DE)
  Receive Date: 20190930
  Receipt Date: 20190930
  Transmission Date: 20191005
  Serious: Yes (Life-Threatening, Hospitalization, Other)
  Sender: FDA-Public Use
  Company Number: DE-ASTRAZENECA-2019SF38110

PATIENT
  Age: 56 Year
  Sex: Male

DRUGS (6)
  1. TIOTROPIUM [Concomitant]
     Active Substance: TIOTROPIUM
  2. BECLOMETASON + FORMOTEROL [Concomitant]
  3. FLUTICASON + VILATENEROL + UMECLIDINIUM [Concomitant]
  4. BUDESONIDE  AND FORMOTEROL [Suspect]
     Active Substance: BUDESONIDE\FORMOTEROL
     Route: 055
  5. SALBUTAMOL [Concomitant]
     Active Substance: ALBUTEROL
     Dosage: CONTINUOUS USE
  6. TIOTROPIUM + OLODATEROL [Concomitant]

REACTIONS (5)
  - Eosinophilia [Unknown]
  - Obstructive airways disorder [Unknown]
  - Forced expiratory volume decreased [Unknown]
  - Lung hypoinflation [Unknown]
  - Dyspnoea [Unknown]

NARRATIVE: CASE EVENT DATE: 201902
